FAERS Safety Report 8539110-6 (Version None)
Quarter: 2012Q3

REPORT INFORMATION
  Report Type: 
  Country: None (occurrence: None)
  Receive Date: 20120726
  Receipt Date: 20120725
  Transmission Date: 20120928
  Serious: Yes (Death)
  Sender: FDA-Public Use
  Company Number: PHFR2012GB002618

PATIENT
  Sex: Female
  Weight: 73 kg

DRUGS (33)
  1. PREGABALIN [Concomitant]
     Dosage: 2 DF, UNK
  2. DIPROBASE CREAM [Concomitant]
  3. LORAZEPAM [Concomitant]
     Dosage: 1 DF, QD
  4. FUROSEMIDE [Concomitant]
     Dosage: 80 MG, EACH MORNING
  5. ZOPICLONE [Concomitant]
     Dosage: 1 DF, (1 TAB AT BEDTIME)
  6. HALOPERIDOL [Concomitant]
     Dosage: 1 DF, UNK
  7. ADCAL [Concomitant]
     Dosage: 2 DF, (1 TAB AT LUNCH AND 1 AT TEA)
  8. AMITRIPTYLINE HCL [Concomitant]
     Dosage: 1 DF, QD
  9. ALGESAL [Concomitant]
  10. BETNOVATE [Concomitant]
  11. FEXOFENADINE [Concomitant]
     Dosage: 1 DF, QD
  12. SERTRALINE HYDROCHLORIDE [Concomitant]
     Dosage: 1 DF, QD
  13. SUDOCREM [Concomitant]
  14. ALENDRONATE SODIUM [Concomitant]
     Dosage: ONE TABLET WEEKLY
  15. DIAZEPAM [Concomitant]
  16. TRIMETHOPRIM [Concomitant]
     Dosage: 1 DF, BID
  17. LACTULOSE [Concomitant]
  18. ACETAMINOPHEN AND CODEINE PHOSPHATE [Concomitant]
     Dosage: 2 DF, TID
  19. MOMETASONE FUROATE [Concomitant]
     Dosage: 1 DF, BID
     Route: 045
  20. CLARITHROMYCIN [Concomitant]
     Dosage: 2 DF, Q6H
  21. CLOZARIL [Suspect]
     Indication: SCHIZOPHRENIA
     Route: 048
     Dates: start: 20020505
  22. AMOXICILLIN [Concomitant]
     Dosage: 20 ML, TID
  23. ERYTHROMYCIN [Concomitant]
     Dosage: 2 DF, QID
  24. TAMOXIFEN CITRATE [Concomitant]
     Dosage: 1 DF, QD
  25. BACLOFEN [Concomitant]
     Dosage: 1 DF, QD (I TAB @NIGHT)
  26. CEPHALEXIN [Concomitant]
     Dosage: 1 DF, QID
  27. MOVIPREP [Concomitant]
     Dosage: 1 DF, QD(1SACHET IN MORNING)
  28. BETAMETHASONE [Concomitant]
  29. SODIUM BICARBONATE [Concomitant]
  30. FERROUS SULFATE TAB [Concomitant]
     Dosage: 1 DF, TID
  31. CARBAMAZEPINE [Concomitant]
     Dosage: 1 DF, BID
  32. ACETAMINOPHEN [Concomitant]
     Dosage: 2 DF, BID
  33. CIPROFLOXACIN [Concomitant]
     Dosage: 1 DF, QD

REACTIONS (11)
  - MANIA [None]
  - RENAL FAILURE CHRONIC [None]
  - GLOMERULAR FILTRATION RATE DECREASED [None]
  - NECK PAIN [None]
  - PAIN [None]
  - SCHIZOPHRENIA, PARANOID TYPE [None]
  - DYSKINESIA [None]
  - FACIAL PAIN [None]
  - BRONCHOPNEUMONIA [None]
  - SOMNOLENCE [None]
  - TARDIVE DYSKINESIA [None]
